FAERS Safety Report 7957466-X (Version None)
Quarter: 2011Q4

REPORT INFORMATION
  Report Type: 
  Country: None (occurrence: None)
  Receive Date: 20111205
  Receipt Date: 20111128
  Transmission Date: 20120403
  Serious: Yes (Hospitalization)
  Sender: FDA-Public Use
  Company Number: FR-PFIZER INC-K201100633

PATIENT
  Age: 79 Year
  Sex: Female

DRUGS (12)
  1. IRINOTECAN HCL [Suspect]
     Dosage: 125 MG/M2, EVERY ONTHER WEEK
     Dates: start: 20110404
  2. ROSUVASTATIN CALCIUM [Concomitant]
     Dosage: UNK
  3. PANTOPRAZOLE [Concomitant]
     Dosage: UNK
     Dates: start: 20110211
  4. AMLODIPINE [Concomitant]
     Dosage: UNK
  5. ALTACE [Suspect]
     Dosage: 5 MG, UNK
     Dates: start: 20110325
  6. IRINOTECAN HCL [Suspect]
     Indication: GASTRIC CANCER
     Dosage: 125 MG/M2, EVERY OTHER WEEK
     Route: 042
     Dates: start: 20101231, end: 20101231
  7. AVASTIN [Suspect]
     Indication: GASTRIC CANCER
     Dosage: 5 MG, EVERY OTHER WEEK
     Route: 042
     Dates: start: 20111231, end: 20111231
  8. OXALIPLATIN [Suspect]
     Indication: GASTRIC CANCER
     Dosage: 85 MG/M2, EVERY OTHER WEEK
     Route: 042
     Dates: start: 20101231, end: 20101231
  9. OXALIPLATIN [Suspect]
     Dosage: 85 MG/M2, EVERY OTHER WEEK
     Route: 042
     Dates: end: 20110324
  10. ASPIRIN [Concomitant]
     Dosage: UNK
     Dates: start: 20101231
  11. ALTACE [Suspect]
     Dosage: 5 MG, UNK
     Route: 048
     Dates: start: 20101231, end: 20110324
  12. NEUROBION FORTE [Concomitant]
     Dosage: UNK
     Dates: start: 20101231

REACTIONS (2)
  - WEIGHT DECREASED [None]
  - COLITIS [None]
